FAERS Safety Report 6809942-0 (Version None)
Quarter: 2010Q2

REPORT INFORMATION
  Report Type: 
  Country: None (occurrence: None)
  Receive Date: 20100630
  Receipt Date: 20100618
  Transmission Date: 20101027
  Serious: Yes (Hospitalization)
  Sender: FDA-Public Use
  Company Number: A0864049A

PATIENT
  Age: 55 Year
  Sex: Female
  Weight: 115.9 kg

DRUGS (8)
  1. AVANDIA [Suspect]
     Indication: DIABETES MELLITUS
     Dosage: 4MG PER DAY
     Route: 048
     Dates: start: 20030601, end: 20060701
  2. LIPITOR [Concomitant]
  3. PAXIL [Concomitant]
  4. TARKA [Concomitant]
  5. CRESTOR [Concomitant]
  6. VIOXX [Concomitant]
  7. ASPIRIN [Concomitant]
     Dosage: 81MG PER DAY
  8. PAXIL [Concomitant]

REACTIONS (8)
  - CALCINOSIS [None]
  - CARPAL TUNNEL SYNDROME [None]
  - CEREBELLAR HAEMORRHAGE [None]
  - HYPERTENSIVE HEART DISEASE [None]
  - LEFT VENTRICLE OUTFLOW TRACT OBSTRUCTION [None]
  - NERVOUS SYSTEM DISORDER [None]
  - NON-CARDIAC CHEST PAIN [None]
  - SYNCOPE [None]
